FAERS Safety Report 5189812-7 (Version None)
Quarter: 2006Q4

REPORT INFORMATION
  Report Type: 
  Country: None (occurrence: None)
  Receive Date: 20061218
  Receipt Date: 20061130
  Transmission Date: 20070319
  Serious: No
  Sender: FDA-Public Use
  Company Number: TPA2006A02160

PATIENT
  Age: 51 Year
  Sex: Female
  Weight: 79.8331 kg

DRUGS (2)
  1. ROZEREM [Suspect]
     Indication: INSOMNIA
     Dosage: 4 MG, QHS, PER ORAL
     Route: 048
     Dates: start: 20061124, end: 20061125
  2. MULTIVITAMIN [Concomitant]

REACTIONS (4)
  - BALANCE DISORDER [None]
  - DIZZINESS [None]
  - FEELING ABNORMAL [None]
  - VERTIGO [None]
